FAERS Safety Report 9210744 (Version 1)
Quarter: 2013Q2

REPORT INFORMATION
  Report Type: Spontaneous
  Country: FR (occurrence: FR)
  Receive Date: 20130404
  Receipt Date: 20130404
  Transmission Date: 20140414
  Serious: Yes (Other)
  Sender: FDA-Public Use
  Company Number: FR-ACTAVIS-2013-05438

PATIENT
  Age: 26 Year
  Sex: Male

DRUGS (4)
  1. RISPERIDONE (UNKNOWN) [Suspect]
     Indication: SCHIZOPHRENIA, PARANOID TYPE
     Dosage: UNK, UNKNOWN
     Route: 065
  2. HALOPERIDOL [Suspect]
     Indication: SCHIZOPHRENIA, PARANOID TYPE
     Dosage: UNK, UNKNOWN
     Route: 065
  3. CYAMEMAZINE [Suspect]
     Indication: SCHIZOPHRENIA, PARANOID TYPE
     Dosage: UNK, UNKNOWN
     Route: 065
  4. ALIMEMAZINE [Suspect]
     Indication: SCHIZOPHRENIA, PARANOID TYPE
     Dosage: UNK, UNKNOWN
     Route: 065

REACTIONS (1)
  - Rhabdomyolysis [Recovered/Resolved]
